FAERS Safety Report 5418858-6 (Version None)
Quarter: 2007Q3

REPORT INFORMATION
  Report Type: 
  Country: None (occurrence: None)
  Receive Date: 20070718
  Receipt Date: 20060717
  Transmission Date: 20080115
  Serious: Yes (Hospitalization)
  Sender: FDA-Public Use
  Company Number: 2006090704

PATIENT
  Age: 67 Year
  Sex: Male
  Weight: 98.8842 kg

DRUGS (3)
  1. CELEBREX [Suspect]
     Indication: ARTHRALGIA
     Dosage: 200 MG (100 MG, 2 IN 1)
     Dates: start: 20000918
  2. CELEBREX [Suspect]
     Indication: BACK PAIN
     Dosage: 200 MG (100 MG, 2 IN 1)
     Dates: start: 20000918
  3. CELEBREX [Suspect]
     Indication: TRIGGER FINGER
     Dosage: 200 MG (100 MG, 2 IN 1)
     Dates: start: 20000918

REACTIONS (1)
  - MYOCARDIAL INFARCTION [None]
